FAERS Safety Report 6686513-0 (Version None)
Quarter: 2010Q2

REPORT INFORMATION
  Report Type: 
  Country: None (occurrence: None)
  Receive Date: 20100419
  Receipt Date: 20100406
  Transmission Date: 20101027
  Serious: Yes (Other)
  Sender: FDA-Public Use
  Company Number: US-ROCHE-696610

PATIENT
  Sex: Female
  Weight: 1.5 kg

DRUGS (1)
  1. OSELTAMIVIR PHOSPHATE [Suspect]
     Route: 064

REACTIONS (1)
  - HYPOXIA [None]
